FAERS Safety Report 7020110-2 (Version None)
Quarter: 2010Q3

REPORT INFORMATION
  Report Type: 
  Country: None (occurrence: None)
  Receive Date: 20100929
  Receipt Date: 20100927
  Transmission Date: 20110219
  Serious: Yes (Death, Hospitalization, Other)
  Sender: FDA-Public Use
  Company Number: US-ASTRAZENECA-2006UW07893

PATIENT
  Age: 528 Month
  Sex: Female
  Weight: 117.5 kg

DRUGS (19)
  1. SEROQUEL [Suspect]
     Indication: DEPRESSION
     Route: 048
     Dates: start: 20030101, end: 20060812
  2. SEROQUEL [Suspect]
     Indication: ANXIETY
     Route: 048
     Dates: start: 20030101, end: 20060812
  3. SEROQUEL [Suspect]
     Indication: MIGRAINE
     Route: 048
     Dates: start: 20030101, end: 20060812
  4. SEROQUEL [Suspect]
     Dosage: 25-300 MG, AT NIGHT
     Route: 048
     Dates: start: 20030727
  5. SEROQUEL [Suspect]
     Dosage: 25-300 MG, AT NIGHT
     Route: 048
     Dates: start: 20030727
  6. SEROQUEL [Suspect]
     Dosage: 25-300 MG, AT NIGHT
     Route: 048
     Dates: start: 20030727
  7. SEROQUEL [Suspect]
     Route: 048
     Dates: start: 20060812
  8. SEROQUEL [Suspect]
     Route: 048
     Dates: start: 20060812
  9. SEROQUEL [Suspect]
     Route: 048
     Dates: start: 20060812
  10. PROZAC [Concomitant]
     Dosage: 20 - 40 MG
     Route: 048
     Dates: start: 20031125, end: 20040425
  11. PAXIL [Concomitant]
     Dates: start: 20040529
  12. ATENOLOL [Concomitant]
     Indication: HYPERTENSION
     Route: 048
     Dates: start: 20030725
  13. ELAVIL [Concomitant]
     Indication: MIGRAINE PROPHYLAXIS
     Route: 048
     Dates: start: 20030729
  14. WELLBUTRIN XL [Concomitant]
     Dates: start: 20060812
  15. PROCARDIA XL [Concomitant]
     Dosage: 30 TO 90 MG
     Route: 048
     Dates: start: 20060812
  16. AMBIEN [Concomitant]
     Route: 048
     Dates: start: 20060812
  17. PERCOCET [Concomitant]
     Dosage: 5/325 MG ONE TAB EVERY 6 HOURS
     Dates: start: 20060812
  18. ASPIRIN [Concomitant]
     Route: 048
     Dates: start: 20060812
  19. PROTONIX [Concomitant]
     Dates: start: 20060812

REACTIONS (5)
  - CEREBROVASCULAR ACCIDENT [None]
  - DEATH [None]
  - DIABETIC KETOACIDOSIS [None]
  - PHARMACOPHOBIA [None]
  - TYPE 2 DIABETES MELLITUS [None]
